FAERS Safety Report 7263809-5 (Version None)
Quarter: 2011Q1

REPORT INFORMATION
  Report Type: 
  Country: None (occurrence: None)
  Receive Date: 20110130
  Receipt Date: 20101027
  Transmission Date: 20110831
  Serious: No
  Sender: FDA-Public Use
  Company Number: US-ABBOTT-10P-163-0682395-00

PATIENT
  Sex: Female
  Weight: 58.112 kg

DRUGS (4)
  1. PRILOSEC [Concomitant]
     Indication: DYSPEPSIA
  2. HUMIRA [Suspect]
     Indication: PSORIASIS
     Dates: start: 20080101
  3. ULTRAM [Concomitant]
     Indication: PAIN
  4. TACLONEX [Concomitant]
     Indication: PSORIASIS
     Route: 061

REACTIONS (4)
  - SWOLLEN TONGUE [None]
  - LOCAL SWELLING [None]
  - ORAL INFECTION [None]
  - GINGIVAL SWELLING [None]
